FAERS Safety Report 5475055-6 (Version None)
Quarter: 2007Q3

REPORT INFORMATION
  Report Type: 
  Country: None (occurrence: None)
  Receive Date: 20070831
  Receipt Date: 20070613
  Transmission Date: 20080115
  Serious: Yes (Hospitalization)
  Sender: FDA-Public Use
  Company Number: 264544

PATIENT

DRUGS (1)
  1. NOVOLIN R [Suspect]
     Indication: DIABETES MELLITUS
     Dosage: 5 CC/HR, INTRAVENOUS
     Route: 042

REACTIONS (2)
  - BLOOD GLUCOSE DECREASED [None]
  - OVERDOSE [None]
